FAERS Safety Report 7103479-X (Version None)
Quarter: 2010Q4

REPORT INFORMATION
  Report Type: 
  Country: None (occurrence: None)
  Receive Date: 20101115
  Receipt Date: 20101104
  Transmission Date: 20110411
  Serious: Yes (Other)
  Sender: FDA-Public Use
  Company Number: US-ASTRAZENECA-2010SE37558

PATIENT
  Age: 80 Year
  Sex: Female
  Weight: 68.5 kg

DRUGS (9)
  1. ARIMIDEX [Suspect]
     Indication: CANCER HORMONAL THERAPY
     Route: 048
     Dates: start: 20040401, end: 20090401
  2. PILOCARPINE [Concomitant]
     Indication: GLAUCOMA
  3. LUMIGAN [Concomitant]
     Indication: GLAUCOMA
  4. COMBIGAN [Concomitant]
     Indication: GLAUCOMA
  5. ARICEPT [Concomitant]
     Indication: DEMENTIA
  6. ATIVAN PRN [Concomitant]
     Indication: ANXIETY
  7. EYE DROPS [Concomitant]
  8. ATENOLOL [Concomitant]
     Indication: HYPERTENSION
  9. HYDROCHLOROTHIAZIDE [Concomitant]

REACTIONS (1)
  - DIABETES MELLITUS [None]
